FAERS Safety Report 5350761-2 (Version None)
Quarter: 2007Q2

REPORT INFORMATION
  Report Type: 
  Country: None (occurrence: None)
  Receive Date: 20070608
  Receipt Date: 20070531
  Transmission Date: 20071010
  Serious: Yes (Other)
  Sender: FDA-Public Use
  Company Number: US-SANOFI-SYNTHELABO-A03200703473

PATIENT
  Age: 65 Year
  Sex: Female

DRUGS (4)
  1. MULTIVITAMIN [Concomitant]
     Dosage: UNK
     Route: 048
  2. KLONOPIN [Concomitant]
     Dosage: UNK
     Route: 048
  3. VICODIN [Concomitant]
     Dosage: UNK
     Route: 048
  4. AMBIEN [Suspect]
     Indication: INSOMNIA
     Route: 048
     Dates: start: 20061020

REACTIONS (3)
  - FATIGUE [None]
  - ROAD TRAFFIC ACCIDENT [None]
  - SOMNOLENCE [None]
